FAERS Safety Report 17719193 (Version 1)
Quarter: 2020Q2

REPORT INFORMATION
  Report Type: Report from Study
  Country: AR (occurrence: AR)
  Receive Date: 20200428
  Receipt Date: 20200428
  Transmission Date: 20200714
  Serious: Yes (Hospitalization)
  Sender: FDA-Public Use
  Company Number: AR-BAYER-2020-067716

PATIENT
  Age: 71 Year
  Sex: Male

DRUGS (1)
  1. XOFIGO [Suspect]
     Active Substance: RADIUM RA-223 DICHLORIDE
     Indication: PROSTATE CANCER
     Dosage: 4 APPLICATIONS PERFORMED
     Route: 042
     Dates: start: 20191129, end: 20200306

REACTIONS (2)
  - Osteonecrosis of jaw [None]
  - Sinusitis [None]

NARRATIVE: CASE EVENT DATE: 20200416
